FAERS Safety Report 8287543-8 (Version None)
Quarter: 2012Q2

REPORT INFORMATION
  Report Type: 
  Country: None (occurrence: None)
  Receive Date: 20120416
  Receipt Date: 20120412
  Transmission Date: 20120825
  Serious: Yes (Life-Threatening, Hospitalization)
  Sender: FDA-Public Use
  Company Number: FR-ASTRAZENECA-2012SE24288

PATIENT
  Age: 5049 Day
  Sex: Female

DRUGS (8)
  1. ACETAMINOPHEN [Suspect]
     Route: 042
     Dates: start: 20120308, end: 20120308
  2. SUFENTANIL CITRATE [Suspect]
     Indication: INDUCTION OF ANAESTHESIA
     Dosage: UNKNOWN DOSE ONCE SINGLE ADMINISTARTION
     Route: 042
     Dates: start: 20120308, end: 20120308
  3. NORMACOL [Concomitant]
     Indication: CONSTIPATION
  4. POLYETHYLENE GLYCOL [Concomitant]
     Indication: CONSTIPATION
  5. XYLOCAINE [Suspect]
     Indication: INDUCTION OF ANAESTHESIA
     Dosage: UNKNOWN DOSE ONCE SINGLE ADMINISTARTION
     Route: 042
     Dates: start: 20120308, end: 20120308
  6. NITROGEN MONOXIDE [Suspect]
     Indication: SURGERY
     Dosage: UNKNOWN DOSE ONCE SINGLE ADMINISTARTION
     Dates: start: 20120308, end: 20120308
  7. SEVOFLURANE [Suspect]
     Indication: INDUCTION OF ANAESTHESIA
     Route: 042
     Dates: start: 20120308, end: 20120308
  8. DIPRIVAN [Suspect]
     Indication: INDUCTION OF ANAESTHESIA
     Dosage: UNKNOWN DOSE ONCE SINGLE ADMINISTARTION
     Route: 042
     Dates: start: 20120308, end: 20120308

REACTIONS (3)
  - CIRCULATORY COLLAPSE [None]
  - BRONCHOSPASM [None]
  - ANAPHYLACTIC SHOCK [None]
